FAERS Safety Report 7775866 (Version 8)
Quarter: 2012Q4

REPORT INFORMATION
  Report Type: 
  Country: US (occurrence: US)
  Receive Date: 20110127
  Receipt Date: 20121126
  Transmission Date: 20130627
  Serious: Yes (Hospitalization, Other)
  Sender: FDA-Public Use
  Company Number: US-ASTRAZENECA-2010SE35056

PATIENT
  Age: 91 Year
  Sex: Female

DRUGS (3)
  1. NEXIUM [Suspect]
     Indication: GASTROOESOPHAGEAL REFLUX DISEASE
     Route: 048
     Dates: start: 2003
  2. NEXIUM [Suspect]
     Indication: GASTROOESOPHAGEAL REFLUX DISEASE
     Route: 048
  3. PLAVIX [Suspect]
     Dosage: GENERIC FORM
     Route: 065

REACTIONS (23)
  - Drug hypersensitivity [Unknown]
  - Adverse drug reaction [Unknown]
  - Rectal haemorrhage [Unknown]
  - Haemorrhage [Unknown]
  - Dehydration [Unknown]
  - Upper limb fracture [Unknown]
  - Loss of consciousness [Unknown]
  - Respiratory arrest [Unknown]
  - Vascular occlusion [Unknown]
  - Fall [Unknown]
  - Dyspnoea [Unknown]
  - Arthritis [Unknown]
  - Gastrooesophageal reflux disease [Unknown]
  - Visual impairment [Unknown]
  - Visual impairment [Unknown]
  - Weight decreased [Unknown]
  - Angiopathy [Unknown]
  - Vomiting [Unknown]
  - Malaise [Unknown]
  - Rash macular [Unknown]
  - Headache [Unknown]
  - Musculoskeletal pain [Unknown]
  - Diarrhoea [Unknown]
